FAERS Safety Report 9386802 (Version 1)
Quarter: 2013Q3

REPORT INFORMATION
  Report Type: Spontaneous
  Country: GB (occurrence: None)
  Receive Date: 20130702
  Receipt Date: 20130702
  Transmission Date: 20140515
  Serious: Yes (Other)
  Sender: FDA-Public Use
  Company Number: GER/UKI/13/0030286

PATIENT
  Age: 56 Year
  Sex: Female
  Weight: 76 kg

DRUGS (4)
  1. ANASTROZOLE [Suspect]
     Indication: PRODUCT USED FOR UNKNOWN INDICATION
     Dates: start: 20130221
  2. AQUEOUS CREAM (CETOSTEARYL ALCOHOL) [Concomitant]
  3. CHLORPHENAMINE (CHLORPHENAMINE) [Concomitant]
  4. CLOBETASONE BUTYRATE (CLOBETASONE BUTYRATE) [Concomitant]

REACTIONS (3)
  - Erythema [None]
  - Pruritus [None]
  - Rash [None]
